FAERS Safety Report 20618751 (Version 5)
Quarter: 2022Q2

REPORT INFORMATION
  Report Type: Report from Study
  Country: US (occurrence: US)
  Receive Date: 20220322
  Receipt Date: 20220622
  Transmission Date: 20220721
  Serious: Yes (Other)
  Sender: FDA-Public Use
  Company Number: US-NOVARTISTESTPH-NVSC2022US064248

PATIENT
  Sex: Female

DRUGS (2)
  1. ENTRESTO [Suspect]
     Active Substance: SACUBITRIL\VALSARTAN
     Indication: Product used for unknown indication
     Dosage: UNK
     Route: 048
     Dates: start: 202203
  2. ENTRESTO [Suspect]
     Active Substance: SACUBITRIL\VALSARTAN
     Dosage: 200 MG, QD (97/103 MG)
     Route: 048

REACTIONS (16)
  - Neuropathy peripheral [Unknown]
  - Systemic lupus erythematosus [Unknown]
  - Ejection fraction decreased [Unknown]
  - Stupor [Unknown]
  - Balance disorder [Unknown]
  - Heart rate increased [Unknown]
  - Blood pressure decreased [Unknown]
  - Asthenia [Unknown]
  - Dehydration [Unknown]
  - Pain in extremity [Unknown]
  - Arthritis [Unknown]
  - Joint swelling [Unknown]
  - Gait disturbance [Unknown]
  - Red blood cell sedimentation rate decreased [Unknown]
  - Inflammation [Unknown]
  - Inappropriate schedule of product administration [Unknown]
